FAERS Safety Report 6070195-5 (Version None)
Quarter: 2009Q1

REPORT INFORMATION
  Report Type: 
  Country: None (occurrence: None)
  Receive Date: 20090204
  Receipt Date: 20090129
  Transmission Date: 20090719
  Serious: Yes (Life-Threatening, Hospitalization)
  Sender: FDA-Public Use
  Company Number: 6048654

PATIENT
  Age: 81 Year
  Sex: Female

DRUGS (6)
  1. EMCONCOR (2.5 MG) (BISOPROLOL FUMARATE) [Suspect]
     Indication: ATRIAL FIBRILLATION
     Dosage: 2.5 MG (2.5 MG, 1 IN 1 D) ORAL
     Route: 048
     Dates: end: 20081118
  2. DIGOXIN [Suspect]
     Indication: ATRIAL FIBRILLATION
     Dosage: 0.25 MG ORAL
     Route: 048
     Dates: end: 20081118
  3. TORSEMIDE [Concomitant]
  4. ENALAPRIL MALEATE [Concomitant]
  5. GABAPENTIN [Concomitant]
  6. ACENOCOUMAROL (ACENOCOUMAROL) [Concomitant]

REACTIONS (3)
  - ATRIOVENTRICULAR BLOCK [None]
  - DRUG INTERACTION [None]
  - SYNCOPE [None]
